FAERS Safety Report 8397930-5 (Version None)
Quarter: 2012Q2

REPORT INFORMATION
  Report Type: 
  Country: None (occurrence: None)
  Receive Date: 20120531
  Receipt Date: 20120525
  Transmission Date: 20120825
  Serious: Yes (Other)
  Sender: FDA-Public Use
  Company Number: PHHY2012JP045501

PATIENT

DRUGS (2)
  1. PHENYTOIN SODIUM CAP [Concomitant]
     Route: 048
  2. EXELON [Suspect]
     Dosage: 4.5MG DAILY
     Route: 062
     Dates: start: 20120522

REACTIONS (1)
  - NYSTAGMUS [None]
